FAERS Safety Report 10172125 (Version 1)
Quarter: 2014Q2

REPORT INFORMATION
  Report Type: Spontaneous
  Country: CH (occurrence: CH)
  Receive Date: 20140515
  Receipt Date: 20140515
  Transmission Date: 20141212
  Serious: Yes (Hospitalization)
  Sender: FDA-Public Use
  Company Number: PHHY2014CH056914

PATIENT
  Age: 74 Year
  Sex: Female

DRUGS (6)
  1. METO ZEROK [Suspect]
     Dosage: 200 MG, QD
     Route: 048
     Dates: end: 20140312
  2. ZOLOFT [Interacting]
     Dosage: 25 MG, QD
     Route: 048
  3. COVERSUM [Concomitant]
  4. JANUVIA [Concomitant]
  5. LESCOL [Concomitant]
  6. TRANXILIUM [Concomitant]

REACTIONS (2)
  - Syncope [Recovered/Resolved]
  - Bradycardia [Recovered/Resolved]
